FAERS Safety Report 9532242 (Version 1)
Quarter: 2013Q3

REPORT INFORMATION
  Report Type: Spontaneous
  Country: US (occurrence: US)
  Receive Date: 20130918
  Receipt Date: 20130918
  Transmission Date: 20140515
  Serious: Yes (Other)
  Sender: FDA-Public Use
  Company Number: US-BAYER-2013-112573

PATIENT
  Age: 46 Year
  Sex: Female

DRUGS (2)
  1. MIRENA [Suspect]
     Indication: CONTRACEPTION
     Dosage: 20 MCG/24HR, CONT
     Route: 015
     Dates: start: 20130902, end: 20130911
  2. MIRENA [Suspect]
     Indication: MENORRHAGIA

REACTIONS (2)
  - Vaginal haemorrhage [Recovered/Resolved]
  - Device expulsion [Recovered/Resolved]
